FAERS Safety Report 11705697 (Version 6)
Quarter: 2016Q4

REPORT INFORMATION
  Report Type: Spontaneous
  Country: US (occurrence: US)
  Receive Date: 20151106
  Receipt Date: 20161214
  Transmission Date: 20170206
  Serious: Yes (Other)
  Sender: FDA-Public Use
  Company Number: PHEH2015US022681

PATIENT
  Sex: Female
  Weight: 46.44 kg

DRUGS (3)
  1. ONDANSETRON HYDROCHLORIDE. [Suspect]
     Active Substance: ONDANSETRON HYDROCHLORIDE
     Indication: VOMITING IN PREGNANCY
     Route: 048
  2. ZOFRAN [Suspect]
     Active Substance: ONDANSETRON HYDROCHLORIDE
     Indication: VOMITING IN PREGNANCY
     Dosage: 1 DF, PRN
     Route: 048
  3. ONDANSETRONE DR. REDDY^S [Suspect]
     Active Substance: ONDANSETRON HYDROCHLORIDE
     Indication: VOMITING IN PREGNANCY
     Dosage: 8 MG, UNK
     Route: 048
     Dates: start: 20130329, end: 20130427

REACTIONS (14)
  - Type 2 diabetes mellitus [Unknown]
  - Chest pain [Unknown]
  - Injury [Unknown]
  - Gestational diabetes [Unknown]
  - Bronchitis [Unknown]
  - Costochondritis [Unknown]
  - Dyspnoea [Unknown]
  - Product use issue [Unknown]
  - Lung infiltration [Unknown]
  - Maternal exposure during pregnancy [Unknown]
  - Emotional distress [Unknown]
  - Pain [Unknown]
  - Stress [Unknown]
  - Anxiety [Unknown]
